FAERS Safety Report 17361796 (Version 1)
Quarter: 2020Q1

REPORT INFORMATION
  Report Type: Report from Study
  Country: CN (occurrence: CN)
  Receive Date: 20200203
  Receipt Date: 20200203
  Transmission Date: 20200409
  Serious: Yes (Other)
  Sender: FDA-Public Use
  Company Number: CN-JNJFOC-20200134786

PATIENT

DRUGS (1)
  1. RISPERDAL [Suspect]
     Active Substance: RISPERIDONE
     Indication: SCHIZOPHRENIA
     Route: 048

REACTIONS (8)
  - Insomnia [Unknown]
  - Gastrointestinal disorder [Unknown]
  - Somnolence [Unknown]
  - Rash [Unknown]
  - Weight increased [Unknown]
  - Hepatorenal syndrome [Unknown]
  - Nausea [Unknown]
  - Vomiting [Unknown]
